FAERS Safety Report 20170800 (Version 1)
Quarter: 2021Q4

REPORT INFORMATION
  Report Type: Spontaneous
  Country: US (occurrence: None)
  Receive Date: 20211210
  Receipt Date: 20211210
  Transmission Date: 20220303
  Serious: Yes (Hospitalization)
  Sender: FDA-Public Use
  Company Number: None

PATIENT
  Age: 73 Year
  Sex: Male

DRUGS (1)
  1. APIXABAN [Suspect]
     Active Substance: APIXABAN
     Indication: Atrial fibrillation
     Dosage: FREQUENCY : TWICE A DAY;?
     Route: 048
     Dates: end: 20210303

REACTIONS (7)
  - Haemoglobin decreased [None]
  - Melaena [None]
  - Haematochezia [None]
  - Anaemia [None]
  - Gastritis [None]
  - Large intestine polyp [None]
  - Duodenitis [None]

NARRATIVE: CASE EVENT DATE: 20210303
